FAERS Safety Report 9405910 (Version 1)
Quarter: 2013Q3

REPORT INFORMATION
  Report Type: Spontaneous
  Country: IT (occurrence: IT)
  Receive Date: 20130717
  Receipt Date: 20130717
  Transmission Date: 20140515
  Serious: Yes (Hospitalization)
  Sender: FDA-Public Use
  Company Number: IT-TEVA-418975ISR

PATIENT
  Age: 72 Year
  Sex: Male

DRUGS (6)
  1. IBUPROFEN [Suspect]
     Indication: PAIN
     Dosage: 2 DOSAGE FORMS DAILY;
     Route: 048
     Dates: start: 20130601, end: 20130610
  2. IBUPROFEN [Suspect]
     Indication: INJURY
  3. TACHIDOL ADULTI 500MG/30MG [Suspect]
     Indication: PAIN
     Dosage: 3 DOSAGE FORMS DAILY; EFFERVESCENT GRANULES
     Route: 048
     Dates: start: 20130601, end: 20130610
  4. TACHIDOL ADULTI 500MG/30MG [Suspect]
     Indication: INJURY
  5. MITTOVAL [Concomitant]
  6. AZARGA 10MG/ML+5MG/ML [Concomitant]
     Dosage: EYE DROPS, SUSPENSION

REACTIONS (3)
  - Pancytopenia [Unknown]
  - Haemolysis [Unknown]
  - Asthenia [Unknown]
